FAERS Safety Report 9748866 (Version 1)
Quarter: 2013Q4

REPORT INFORMATION
  Report Type: Spontaneous
  Country: US (occurrence: US)
  Receive Date: 20131212
  Receipt Date: 20131212
  Transmission Date: 20140711
  Serious: Yes (Other)
  Sender: FDA-Public Use
  Company Number: US-INCYTE CORPORATION-2013IN002054

PATIENT
  Age: 67 Year
  Sex: Female

DRUGS (4)
  1. JAKAFI [Suspect]
     Indication: MYELOFIBROSIS
     Dosage: 5 MG, BID
     Route: 048
     Dates: start: 201307
  2. JAKAFI [Suspect]
     Dosage: 15 MG, BID
     Route: 048
  3. ALLOPURINOL [Concomitant]
  4. CLONAZEPAM [Concomitant]

REACTIONS (1)
  - Platelet count decreased [Unknown]
